FAERS Safety Report 24981394 (Version 1)
Quarter: 2025Q1

REPORT INFORMATION
  Report Type: Spontaneous
  Country: CN (occurrence: CN)
  Receive Date: 20250218
  Receipt Date: 20250218
  Transmission Date: 20250409
  Serious: Yes (Hospitalization)
  Sender: BAYER HEALTHCARE PHARMACEUTICALS INC.
  Company Number: CN-BAYER-2025A023146

PATIENT
  Age: 75 Year
  Sex: Female
  Weight: 51 kg

DRUGS (2)
  1. GLUCOBAY [Interacting]
     Active Substance: ACARBOSE
     Indication: Type 2 diabetes mellitus
     Dosage: 50 MG, TID
     Route: 048
     Dates: start: 20241001, end: 20250206
  2. GLIPIZIDE\METFORMIN HYDROCHLORIDE [Interacting]
     Active Substance: GLIPIZIDE\METFORMIN HYDROCHLORIDE
     Indication: Type 2 diabetes mellitus
     Dosage: 1 DF, BID
     Route: 048
     Dates: start: 20241001, end: 20250206

REACTIONS (5)
  - Hypoglycaemic coma [Recovering/Resolving]
  - Speech disorder [Recovering/Resolving]
  - Decreased appetite [None]
  - Hypophagia [None]
  - Asthenia [Recovering/Resolving]

NARRATIVE: CASE EVENT DATE: 20250201
